FAERS Safety Report 8348881 (Version 3)
Quarter: 2012Q4

REPORT INFORMATION
  Report Type: 
  Country: US (occurrence: US)
  Receive Date: 20120123
  Receipt Date: 20120906
  Transmission Date: 20130627
  Serious: Yes (Death)
  Sender: FDA-Public Use
  Company Number: US-ACTELION-A-NJ2012-59791

PATIENT
  Age: 65 Year
  Sex: Male

DRUGS (13)
  1. TRACLEER [Suspect]
     Indication: PULMONARY ARTERIAL HYPERTENSION
     Dosage: UNK
     Route: 048
     Dates: start: 20110107
  2. ADCIRCA [Concomitant]
  3. COREG [Concomitant]
  4. ASPIRIN [Concomitant]
  5. LASIX [Concomitant]
  6. MUCOMYST [Concomitant]
  7. PRILOSEC [Concomitant]
  8. ZANTAC [Concomitant]
  9. FISH OIL [Concomitant]
  10. EPOGEN [Concomitant]
  11. NEURONTIN [Concomitant]
  12. HUMALIN [Concomitant]
  13. ZETIA [Concomitant]

REACTIONS (1)
  - Ischaemic cardiomyopathy [Fatal]
